FAERS Safety Report 15352646 (Version 1)
Quarter: 2018Q3

REPORT INFORMATION
  Report Type: Spontaneous
  Country: FR (occurrence: FR)
  Receive Date: 20180905
  Receipt Date: 20180905
  Transmission Date: 20181010
  Serious: Yes (Life-Threatening)
  Sender: FDA-Public Use
  Company Number: FR-PFIZER INC-2018353459

PATIENT
  Age: 18 Year
  Sex: Male
  Weight: 64 kg

DRUGS (4)
  1. ONCASPAR [Suspect]
     Active Substance: PEGASPARGASE
     Indication: T-CELL TYPE ACUTE LEUKAEMIA
     Dosage: 2000 IU/M?
     Route: 042
     Dates: start: 20180615
  2. METHOTREXATE SODIUM. [Suspect]
     Active Substance: METHOTREXATE SODIUM
     Indication: T-CELL TYPE ACUTE LEUKAEMIA
     Dosage: 12 MG, UNK
     Route: 037
     Dates: start: 20180615
  3. DOXORUBICINE [DOXORUBICIN] [Concomitant]
     Indication: T-CELL TYPE ACUTE LEUKAEMIA
     Dosage: 30 MG/M2, UNK
     Route: 042
     Dates: start: 20180619
  4. VINCRISTINE SULFATE. [Suspect]
     Active Substance: VINCRISTINE SULFATE
     Indication: T-CELL TYPE ACUTE LEUKAEMIA
     Dosage: 1.5 MG/M2, SINGLE
     Route: 042
     Dates: start: 20180619, end: 20180619

REACTIONS (1)
  - Intracranial venous sinus thrombosis [Recovered/Resolved]

NARRATIVE: CASE EVENT DATE: 20180625
